FAERS Safety Report 5301365-9 (Version None)
Quarter: 2007Q1

REPORT INFORMATION
  Report Type: 
  Country: None (occurrence: None)
  Receive Date: 20070201
  Receipt Date: 20061213
  Transmission Date: 20070707
  Serious: No
  Sender: FDA-Public Use
  Company Number: 2006PV026921

PATIENT
  Age: 54 Year
  Sex: Female
  Weight: 144.6975 kg

DRUGS (2)
  1. BYETTA [Suspect]
     Indication: GLUCOSE TOLERANCE IMPAIRED
     Dosage: 10 MCG;BID;SC
     Route: 058
     Dates: start: 20061212
  2. METFORMIN HCL [Concomitant]

REACTIONS (5)
  - NAUSEA [None]
  - PNEUMONIA [None]
  - PYREXIA [None]
  - SOMNOLENCE [None]
  - VOMITING [None]
